FAERS Safety Report 5528554-2 (Version None)
Quarter: 2007Q4

REPORT INFORMATION
  Report Type: 
  Country: None (occurrence: None)
  Receive Date: 20071121
  Receipt Date: 20071109
  Transmission Date: 20080405
  Serious: Yes (Life-Threatening, Other)
  Sender: FDA-Public Use
  Company Number: CIP07002348

PATIENT
  Age: 84 Year
  Sex: Female

DRUGS (7)
  1. NITROFURANTOIN MACROCRYSTALS(NITROFURANTOIN, MACROCRYSTALS) CAPSULE, U [Suspect]
     Dosage: ORAL
     Route: 048
     Dates: end: 20070926
  2. MICONAZOLE [Suspect]
     Dosage: 24 MG THREE TIMES DAILY, ORAL
     Route: 048
     Dates: start: 20070918, end: 20070925
  3. ERGOCALCIFEROL [Suspect]
     Dosage: ORAL
     Route: 048
     Dates: end: 20070926
  4. WARFARIN SODIUM [Suspect]
     Dosage: ORAL
     Route: 048
     Dates: start: 20070917, end: 20070925
  5. CALCIUM (CALCIUM) [Concomitant]
  6. COLECALCIFEROL (COLECALCIFEROL) [Concomitant]
  7. LAMOTRIGINE [Concomitant]

REACTIONS (5)
  - BLOOD CALCIUM DECREASED [None]
  - CONFUSIONAL STATE [None]
  - DRUG INTERACTION [None]
  - INTERNATIONAL NORMALISED RATIO INCREASED [None]
  - SOMNOLENCE [None]
